FAERS Safety Report 7524641-8 (Version None)
Quarter: 2011Q2

REPORT INFORMATION
  Report Type: 
  Country: None (occurrence: None)
  Receive Date: 20110601
  Receipt Date: 20110601
  Transmission Date: 20111010
  Serious: Yes (Death)
  Sender: FDA-Public Use
  Company Number: None

PATIENT
  Age: 84 Year
  Sex: Female

DRUGS (15)
  1. REVLIMID [Suspect]
     Indication: MULTIPLE MYELOMA
     Dosage: 2.5MG EVERY OTHER DAY ORALLY
     Route: 048
     Dates: start: 20091101, end: 20101201
  2. MORPHINE [Concomitant]
  3. PHENOBARBITAL TAB [Concomitant]
  4. ALBUTEROL SULFATE AUTOHALER [Concomitant]
  5. HALOPERIDOL [Concomitant]
  6. OXYCODONE HCL [Concomitant]
  7. FUROSEMIDE [Concomitant]
  8. REVLIMID [Suspect]
  9. INDOMETHACIN [Concomitant]
  10. LORAZEPAM [Concomitant]
  11. NEOPOGEN [Concomitant]
  12. LIPITOR [Concomitant]
  13. OMEPRAZOLE [Concomitant]
  14. DOCUSATE [Concomitant]
  15. ADVAIR DISKUS 100/50 [Concomitant]

REACTIONS (1)
  - PANCYTOPENIA [None]
